FAERS Safety Report 6129399-5 (Version None)
Quarter: 2009Q1

REPORT INFORMATION
  Report Type: 
  Country: None (occurrence: None)
  Receive Date: 20090324
  Receipt Date: 20090312
  Transmission Date: 20090719
  Serious: Yes (Hospitalization)
  Sender: FDA-Public Use
  Company Number: US-JNJFOC-20090100272

PATIENT
  Sex: Female
  Weight: 56.7 kg

DRUGS (10)
  1. REMICADE [Suspect]
     Dosage: 6/7 INFUSIONS RECEIVED WITH LAST 2 BEING INCREASED
     Route: 042
  2. REMICADE [Suspect]
     Indication: COLITIS ULCERATIVE
     Dosage: 6/7 INFUSIONS RECEIVED WITH LAST 2 BEING INCREASED
     Route: 042
  3. PREDNISONE [Suspect]
     Indication: COLITIS ULCERATIVE
     Dosage: THERAPY DURATION ^YEARS^; VARYING DOSES
  4. ASACOL [Concomitant]
     Indication: COLITIS ULCERATIVE
     Dosage: FOR 5 OR 6 YEARS
  5. ALBUTERAL [Concomitant]
     Indication: ASTHMA
     Dosage: FOR 15 YEARS
  6. CALCIUM [Concomitant]
  7. LIALDA [Concomitant]
  8. CANASA [Concomitant]
  9. DICYCLOMINE [Concomitant]
  10. ACTONEL [Concomitant]

REACTIONS (3)
  - ADRENAL INSUFFICIENCY [None]
  - PNEUMONIA [None]
  - TOTAL LUNG CAPACITY DECREASED [None]
